FAERS Safety Report 24645333 (Version 4)
Quarter: 2024Q4

REPORT INFORMATION
  Report Type: Spontaneous
  Country: DE (occurrence: DE)
  Receive Date: 20241121
  Receipt Date: 20241209
  Transmission Date: 20250115
  Serious: Yes (Hospitalization)
  Sender: SANDOZ
  Company Number: None

PATIENT
  Age: 60 Year
  Sex: Male
  Weight: 84 kg

DRUGS (44)
  1. CYCLOPHOSPHAMIDE [Suspect]
     Active Substance: CYCLOPHOSPHAMIDE
     Indication: Non-Hodgkin^s lymphoma
     Dosage: 1460 MG, TIW, ON 29-OCT-2024,  RECEIVED MOST RECENT DOSE 1490 MG  OF CYCLOPHOSPHAMIDE PRIOR TO AE/SA
     Route: 042
     Dates: start: 20240806
  2. CYCLOPHOSPHAMIDE [Suspect]
     Active Substance: CYCLOPHOSPHAMIDE
     Dosage: 1490 MG
     Route: 042
  3. DOXORUBICIN [Suspect]
     Active Substance: DOXORUBICIN
     Indication: Non-Hodgkin^s lymphoma
     Dosage: 98 MG, TIW, ON 29-OCT-2024, RECEIVED MOST RECENT DOSE OF DRUG PRIOR TO AE/SAE.
     Route: 042
     Dates: start: 20241029
  4. DOXORUBICIN [Suspect]
     Active Substance: DOXORUBICIN
     Dosage: 99 MG
     Route: 042
  5. PREDNISONE [Suspect]
     Active Substance: PREDNISONE
     Indication: Non-Hodgkin^s lymphoma
     Dosage: 100 MG, TIW. ON 02-NOV-2024, RECEIVED MOST RECENT DOSE OF DRUG PRIOR TO AE/SAE.
     Route: 048
     Dates: start: 20240806
  6. POLATUZUMAB VEDOTIN [Suspect]
     Active Substance: POLATUZUMAB VEDOTIN
     Indication: Non-Hodgkin^s lymphoma
     Dosage: 146 MG, TIW, ON 29-OCT-2024,  RECEIVED MOST RECENT DOSE (150 MG) OF POLATUZUMAB VEDOTIN PRIOR TO AE/
     Route: 042
     Dates: start: 20240807
  7. POLATUZUMAB VEDOTIN [Suspect]
     Active Substance: POLATUZUMAB VEDOTIN
     Dosage: 150 MG
     Route: 042
  8. RITUXIMAB [Suspect]
     Active Substance: RITUXIMAB
     Indication: Non-Hodgkin^s lymphoma
     Dosage: 730 MG, TIW, ON 29-OCT-2024,  RECEIVED MOST RECENT DOSE (740MG) RITUXIMAB PRIOR TO AE/SAE.
     Route: 042
     Dates: start: 20240806
  9. RITUXIMAB [Suspect]
     Active Substance: RITUXIMAB
     Dosage: 740 MG
     Route: 042
  10. ACYCLOVIR [Concomitant]
     Active Substance: ACYCLOVIR
     Indication: Product used for unknown indication
     Dosage: 200 MG, QD
     Route: 048
     Dates: start: 20240805
  11. ALLOPURINOL [Concomitant]
     Active Substance: ALLOPURINOL
     Indication: Product used for unknown indication
     Dosage: 100 MG, QD
     Route: 048
     Dates: start: 20240807
  12. Amoxicillin/Clavulansaure AAA Pharma [Concomitant]
     Indication: Product used for unknown indication
     Dosage: UNK
     Route: 048
     Dates: start: 20241107, end: 20241111
  13. CIPROFLOXACIN [Concomitant]
     Active Substance: CIPROFLOXACIN
     Indication: Product used for unknown indication
     Dosage: 500.000MG
     Route: 048
     Dates: start: 20241125, end: 20241128
  14. CLEMASTINE [Concomitant]
     Active Substance: CLEMASTINE
     Indication: Product used for unknown indication
     Dosage: 2 MG, QD
     Route: 042
     Dates: start: 20241029, end: 20241029
  15. CLEMASTINE [Concomitant]
     Active Substance: CLEMASTINE
     Dosage: 2 MG, QD
     Route: 042
     Dates: start: 20241008, end: 20241008
  16. CLEMASTINE [Concomitant]
     Active Substance: CLEMASTINE
     Dosage: 2.000MG QD
     Route: 042
     Dates: start: 20241119, end: 20241119
  17. SULFAMETHOXAZOLE\TRIMETHOPRIM [Concomitant]
     Active Substance: SULFAMETHOXAZOLE\TRIMETHOPRIM
     Indication: Product used for unknown indication
     Dosage: 960 MG
     Route: 048
     Dates: start: 20240807
  18. ENOXAPARIN [Concomitant]
     Active Substance: ENOXAPARIN
     Indication: Product used for unknown indication
     Dosage: 40 MG, QD
     Route: 058
     Dates: start: 20241106, end: 20241106
  19. ENOXAPARIN [Concomitant]
     Active Substance: ENOXAPARIN
     Dosage: 40 MG, QD
     Route: 058
     Dates: start: 20240806
  20. IONOSTERIL [Concomitant]
     Indication: Product used for unknown indication
     Dosage: 1000 ML, QD
     Route: 042
     Dates: start: 20241106, end: 20241106
  21. LIPEGFILGRASTIM [Concomitant]
     Active Substance: LIPEGFILGRASTIM
     Indication: Product used for unknown indication
     Dosage: 6 MG, QD
     Route: 058
     Dates: start: 20241101, end: 20241101
  22. MESNA [Concomitant]
     Active Substance: MESNA
     Dosage: 400 MG, QD
     Route: 042
     Dates: start: 20241008, end: 20241008
  23. MESNA [Concomitant]
     Active Substance: MESNA
     Dosage: 400 MG, QD
     Route: 042
     Dates: start: 20241008, end: 20241008
  24. MESNA [Concomitant]
     Active Substance: MESNA
     Dosage: 400 MG, QD
     Route: 042
     Dates: start: 20241029, end: 20241029
  25. MESNA [Concomitant]
     Active Substance: MESNA
     Dosage: 400.000MG QD
     Route: 042
     Dates: start: 20241119, end: 20241119
  26. MESNA [Concomitant]
     Active Substance: MESNA
     Dosage: 400.000MG QD
     Route: 042
     Dates: start: 20241119, end: 20241119
  27. MESNA [Concomitant]
     Active Substance: MESNA
     Indication: Product used for unknown indication
     Dosage: 800 MG, QD
     Route: 042
     Dates: start: 20241008, end: 20241008
  28. MESNA [Concomitant]
     Active Substance: MESNA
     Dosage: 800 MG, QD
     Route: 048
     Dates: start: 20241029, end: 20241029
  29. METOCLOPRAMIDE [Concomitant]
     Active Substance: METOCLOPRAMIDE
     Indication: Product used for unknown indication
     Dosage: 10.000MG
     Route: 048
     Dates: start: 20240722
  30. SODIUM CHLORIDE [Concomitant]
     Active Substance: SODIUM CHLORIDE
     Indication: Product used for unknown indication
     Dosage: 1000 ML, QD
     Route: 042
     Dates: start: 20241029, end: 20241029
  31. SODIUM CHLORIDE [Concomitant]
     Active Substance: SODIUM CHLORIDE
     Dosage: 1000 ML, QD
     Route: 042
     Dates: start: 20241008, end: 20241008
  32. ONDANSETRON [Concomitant]
     Active Substance: ONDANSETRON
     Indication: Nausea
     Dosage: 8 MG, QD
     Route: 048
     Dates: start: 20241008, end: 20241008
  33. ONDANSETRON [Concomitant]
     Active Substance: ONDANSETRON
     Dosage: 8.000MG QD
     Route: 042
     Dates: start: 20241119, end: 20241119
  34. ONDANSETRON [Concomitant]
     Active Substance: ONDANSETRON
     Dosage: 8.000MG QD
     Route: 042
     Dates: start: 20241119, end: 20241119
  35. ONDANSETRON [Concomitant]
     Active Substance: ONDANSETRON
     Dosage: 8 MG
     Route: 042
     Dates: start: 20241029, end: 20241029
  36. ONDANSETRON [Concomitant]
     Active Substance: ONDANSETRON
     Dosage: 8 MG
     Route: 042
     Dates: start: 20241030, end: 20241030
  37. ONDANSETRON [Concomitant]
     Active Substance: ONDANSETRON
     Dosage: 8 MG
     Route: 048
     Dates: start: 20240722
  38. ACETAMINOPHEN [Concomitant]
     Active Substance: ACETAMINOPHEN
     Indication: Premedication
     Dosage: 1000 MG, QD
     Route: 048
     Dates: start: 20241008, end: 20241008
  39. ACETAMINOPHEN [Concomitant]
     Active Substance: ACETAMINOPHEN
     Dosage: 1000 MG, QD
     Route: 048
     Dates: start: 20241029, end: 20241029
  40. ACETAMINOPHEN [Concomitant]
     Active Substance: ACETAMINOPHEN
     Dosage: 1000.000MG QD
     Route: 048
     Dates: start: 20241119, end: 20241119
  41. ACETAMINOPHEN [Concomitant]
     Active Substance: ACETAMINOPHEN
     Dosage: 1000.000MG QD
     Route: 048
     Dates: start: 20241119, end: 20241119
  42. PEGFILGRASTIM [Concomitant]
     Active Substance: PEGFILGRASTIM
     Indication: Product used for unknown indication
     Dosage: 6 MG, QD, GIVEN FOR PROPHYLAXIS IS YES
     Route: 058
     Dates: start: 20241011, end: 20241011
  43. PEGFILGRASTIM [Concomitant]
     Active Substance: PEGFILGRASTIM
     Dosage: GIVEN FOR PROPHYLAXIS IS YES
     Route: 058
     Dates: start: 20241122, end: 20241122
  44. VITAMIN D [Concomitant]
     Active Substance: VITAMIN D NOS
     Indication: Product used for unknown indication
     Dosage: 1.000DF QD
     Route: 048
     Dates: start: 20240722

REACTIONS (1)
  - Febrile neutropenia [Recovering/Resolving]

NARRATIVE: CASE EVENT DATE: 20241105
